FAERS Safety Report 4561049-1 (Version None)
Quarter: 2005Q1

REPORT INFORMATION
  Report Type: 
  Country: None (occurrence: None)
  Receive Date: 20050126
  Receipt Date: 20040930
  Transmission Date: 20050727
  Serious: No
  Sender: FDA-Public Use
  Company Number: US-BRISTOL-MYERS SQUIBB COMPANY-12718359

PATIENT
  Age: 73 Year
  Sex: Female
  Weight: 91 kg

DRUGS (8)
  1. METFORMIN HCL [Suspect]
     Indication: DIABETES MELLITUS
     Dosage: 500 MG IN AM, 850 MG IN PM
     Route: 048
  2. PRINIVIL [Concomitant]
  3. HYDROCHLOROTHIAZIDE [Concomitant]
  4. VITAMIN B-12 [Concomitant]
  5. VITAMIN B6 [Concomitant]
  6. CHONDROITIN + GLUCOSAMINE [Concomitant]
  7. MULTI-VITAMIN [Concomitant]
  8. VITAMIN E [Concomitant]

REACTIONS (2)
  - ABDOMINAL PAIN [None]
  - DIARRHOEA [None]
